FAERS Safety Report 9132217 (Version 1)
Quarter: 2013Q1

REPORT INFORMATION
  Report Type: Spontaneous
  Country: US (occurrence: US)
  Receive Date: 20130301
  Receipt Date: 20130301
  Transmission Date: 20140127
  Serious: No
  Sender: FDA-Public Use
  Company Number: US-BAYER-2013-026606

PATIENT
  Sex: Male
  Weight: 78.91 kg

DRUGS (10)
  1. BETASERON [Suspect]
     Dosage: 0.25 MG, QOD
     Route: 058
  2. EFFEXOR [Concomitant]
     Dosage: 25 MG, UNK
  3. FOLIC ACID [Concomitant]
  4. CARVEDILOL [Concomitant]
     Dosage: 12.5 MG, UNK
  5. AMPHETAMINE SALTS [Concomitant]
     Dosage: 5 MG, UNK
  6. DICYCLOMINE [Concomitant]
     Dosage: 10 MG, UNK
  7. CLONAZEPAM [Concomitant]
     Dosage: 0.5 MG, UNK
  8. EXCEDRIN MIGRAINE [Concomitant]
  9. LOPID [Concomitant]
     Dosage: 600 MG, UNK
  10. GABAPENTIN [Concomitant]
     Dosage: 100 MG, UNK

REACTIONS (2)
  - White blood cell count decreased [Unknown]
  - Hypothyroidism [Unknown]
